FAERS Safety Report 16640142 (Version 3)
Quarter: 2019Q3

REPORT INFORMATION
  Report Type: Not Available
  Country: US (occurrence: US)
  Receive Date: 20190727
  Receipt Date: 20190829
  Transmission Date: 20191004
  Serious: Yes (Hospitalization)
  Sender: FDA-Public Use
  Company Number: US-NEUROCRINE BIOSCIENCES INC.-2019NBI01996

PATIENT
  Age: 68 Year
  Sex: Female

DRUGS (22)
  1. ADVAIR HFA [Concomitant]
     Active Substance: FLUTICASONE PROPIONATE\SALMETEROL XINAFOATE
     Dosage: 250 MG-50MG ONE PUFF DAILY
  2. SEROQUEL [Concomitant]
     Active Substance: QUETIAPINE FUMARATE
     Dates: end: 20190619
  3. MYBERTIQ [Concomitant]
  4. INGREZZA [Suspect]
     Active Substance: VALBENAZINE
     Indication: TARDIVE DYSKINESIA
     Route: 048
     Dates: start: 20171010
  5. PROZAC [Concomitant]
     Active Substance: FLUOXETINE HYDROCHLORIDE
     Dates: start: 20190620
  6. ATORVASTATIN [Concomitant]
     Active Substance: ATORVASTATIN
  7. MULTIVITAMIN [Concomitant]
     Active Substance: VITAMINS
  8. DULCOLAX NOS [Concomitant]
     Active Substance: BISACODYL OR DOCUSATE SODIUM
  9. PROZAC [Concomitant]
     Active Substance: FLUOXETINE HYDROCHLORIDE
     Indication: BIPOLAR DISORDER
     Dates: end: 20190619
  10. TRAZODONE [Concomitant]
     Active Substance: TRAZODONE HYDROCHLORIDE
     Indication: INSOMNIA
     Dosage: 1 AT BEDTIME AS NEEDED
  11. MELOXICAM. [Concomitant]
     Active Substance: MELOXICAM
  12. PROVENTIL [Concomitant]
     Active Substance: ALBUTEROL
     Dosage: 2 PUFFS EVERY 4-6 HOURS
  13. INGREZZA [Suspect]
     Active Substance: VALBENAZINE
     Route: 048
  14. NITROSTAT [Concomitant]
     Active Substance: NITROGLYCERIN
     Indication: CHEST PAIN
  15. SEROQUEL [Concomitant]
     Active Substance: QUETIAPINE FUMARATE
     Dosage: 1.5 TABLETS AT BEDTIME
     Dates: start: 20190620
  16. CARVEDILOL. [Concomitant]
     Active Substance: CARVEDILOL
  17. EFFIENT [Concomitant]
     Active Substance: PRASUGREL HYDROCHLORIDE
  18. ASPIRIN 81 [Concomitant]
     Active Substance: ASPIRIN
  19. NITROPATCH [Concomitant]
     Active Substance: NITROGLYCERIN
  20. VISTARIL [Concomitant]
     Active Substance: HYDROXYZINE PAMOATE
     Indication: ANXIETY
     Dosage: 1 CAPSULE TWICE DAILY AS NEEDED
  21. ACETAMINOPHEN. [Concomitant]
     Active Substance: ACETAMINOPHEN
     Indication: PAIN
     Dosage: 2 DAILY AS NEEDED
  22. ALBUTEROL. [Concomitant]
     Active Substance: ALBUTEROL
     Dosage: 2.5 MG/3CC AS NEEDED

REACTIONS (1)
  - Cardiac failure congestive [Not Recovered/Not Resolved]

NARRATIVE: CASE EVENT DATE: 20190709
